FAERS Safety Report 12558411 (Version 2)
Quarter: 2016Q3

REPORT INFORMATION
  Report Type: Spontaneous
  Country: US (occurrence: US)
  Receive Date: 20160714
  Receipt Date: 20160718
  Transmission Date: 20161109
  Serious: Yes (Hospitalization, Other)
  Sender: FDA-Public Use
  Company Number: US-ALLERGAN-1653250US

PATIENT
  Age: 52 Year
  Sex: Female
  Weight: 68.27 kg

DRUGS (1)
  1. BOTOX [Suspect]
     Active Substance: ONABOTULINUMTOXINA
     Indication: DYSKINESIA
     Dosage: UNK, SINGLE
     Route: 030
     Dates: start: 201602, end: 201602

REACTIONS (5)
  - Off label use [Unknown]
  - Respiratory failure [Recovered/Resolved]
  - Pneumonia aspiration [Recovered/Resolved]
  - Muscular weakness [Recovered/Resolved]
  - Fungal cystitis [Recovered/Resolved]

NARRATIVE: CASE EVENT DATE: 201602
